FAERS Safety Report 13760822 (Version 1)
Quarter: 2017Q3

REPORT INFORMATION
  Report Type: Spontaneous
  Country: US (occurrence: US)
  Receive Date: 20170717
  Receipt Date: 20170717
  Transmission Date: 20171127
  Serious: No
  Sender: FDA-Public Use
  Company Number: US-ASTRAZENECA-2017SE71488

PATIENT
  Age: 3852 Week
  Sex: Female
  Weight: 47.6 kg

DRUGS (5)
  1. TRAZODONE [Concomitant]
     Active Substance: TRAZODONE HYDROCHLORIDE
     Indication: SLEEP DISORDER
     Dosage: AS REQUIRED
     Route: 048
  2. IRESSA [Suspect]
     Active Substance: GEFITINIB
     Indication: PLEURAL MESOTHELIOMA MALIGNANT
     Route: 048
  3. LEVOTHYROXINE. [Concomitant]
     Active Substance: LEVOTHYROXINE
     Indication: THYROIDITIS
     Route: 048
  4. MARIJUANA [Concomitant]
     Active Substance: CANNABIS SATIVA SUBSP. INDICA TOP
     Indication: SLEEP DISORDER
     Dosage: AS REQUIRED
     Route: 048
  5. ATENOLOL. [Suspect]
     Active Substance: ATENOLOL
     Indication: HEART RATE DECREASED
     Dosage: AS REQUIRED
     Route: 048

REACTIONS (8)
  - Stress [Unknown]
  - Diarrhoea [Recovered/Resolved]
  - Dizziness [Unknown]
  - Skin tightness [Not Recovered/Not Resolved]
  - Circumstance or information capable of leading to medication error [Unknown]
  - Memory impairment [Unknown]
  - Oral administration complication [Unknown]
  - Fatigue [Unknown]

NARRATIVE: CASE EVENT DATE: 20170705
